FAERS Safety Report 15188455 (Version 25)
Quarter: 2021Q4

REPORT INFORMATION
  Report Type: Report from Study
  Country: US (occurrence: US)
  Receive Date: 20180724
  Receipt Date: 20211108
  Transmission Date: 20220303
  Serious: Yes (Other)
  Sender: FDA-Public Use
  Company Number: US-TEVA-2018-US-930581

PATIENT
  Age: 27 Year
  Sex: Male

DRUGS (1)
  1. CLOZAPINE [Suspect]
     Active Substance: CLOZAPINE
     Indication: Product used for unknown indication
     Route: 065

REACTIONS (3)
  - Agranulocytosis [Unknown]
  - Granulocytopenia [Not Recovered/Not Resolved]
  - Neutrophil count abnormal [Unknown]

NARRATIVE: CASE EVENT DATE: 20210615
